FAERS Safety Report 11067564 (Version 1)
Quarter: 2015Q2

REPORT INFORMATION
  Report Type: Spontaneous
  Country: US (occurrence: US)
  Receive Date: 20150427
  Receipt Date: 20150427
  Transmission Date: 20150821
  Serious: No
  Sender: FDA-Public Use
  Company Number: US-TEVA-487518USA

PATIENT
  Age: 64 Year
  Sex: Female
  Weight: 118.04 kg

DRUGS (4)
  1. BUMETANIDE. [Suspect]
     Active Substance: BUMETANIDE
     Indication: PAIN IN EXTREMITY
  2. DICLOFENAC [Concomitant]
     Active Substance: DICLOFENAC
  3. BUMETANIDE. [Suspect]
     Active Substance: BUMETANIDE
     Indication: ARTHRALGIA
     Dosage: 150 MILLIGRAM DAILY;
     Dates: start: 20140122
  4. BUMETANIDE. [Suspect]
     Active Substance: BUMETANIDE
     Indication: BACK PAIN

REACTIONS (4)
  - Peripheral swelling [Not Recovered/Not Resolved]
  - Rash [Not Recovered/Not Resolved]
  - Pruritus generalised [Not Recovered/Not Resolved]
  - Erythema [Not Recovered/Not Resolved]

NARRATIVE: CASE EVENT DATE: 201402
